FAERS Safety Report 8525511-9 (Version None)
Quarter: 2012Q3

REPORT INFORMATION
  Report Type: 
  Country: None (occurrence: None)
  Receive Date: 20120720
  Receipt Date: 20120711
  Transmission Date: 20120928
  Serious: Yes (Hospitalization)
  Sender: FDA-Public Use
  Company Number: BE-ABBOTT-12P-013-0909476-01

PATIENT
  Sex: Female
  Weight: 45 kg

DRUGS (5)
  1. METRONIDAZOLE [Concomitant]
     Indication: ANTIINFLAMMATORY THERAPY
     Dates: start: 20091210, end: 20111201
  2. HUMIRA [Suspect]
     Indication: CROHN'S DISEASE
     Route: 058
     Dates: start: 20080327, end: 20111203
  3. CETRIMIDE [Concomitant]
     Indication: ANAL SKIN TAGS
     Dates: start: 20110107, end: 20111201
  4. DAKTOZIN [Concomitant]
     Indication: PROPHYLAXIS
     Dates: start: 20091210, end: 20111201
  5. BECLOMETHASONE DIPROPIONATE [Concomitant]
     Indication: ANTIINFLAMMATORY THERAPY
     Dates: start: 20091210, end: 20111201

REACTIONS (1)
  - CROHN'S DISEASE [None]
